FAERS Safety Report 20585587 (Version 5)
Quarter: 2022Q2

REPORT INFORMATION
  Report Type: Spontaneous
  Country: US (occurrence: US)
  Receive Date: 20220312
  Receipt Date: 20220506
  Transmission Date: 20220721
  Serious: Yes (Hospitalization, Other)
  Sender: FDA-Public Use
  Company Number: US-UNITED THERAPEUTICS-UNT-2022-005420

PATIENT
  Age: 48 Year
  Sex: Male

DRUGS (4)
  1. REMODULIN [Suspect]
     Active Substance: TREPROSTINIL
     Indication: Pulmonary arterial hypertension
     Dosage: UNK UNK, CONTINUING
     Route: 058
     Dates: start: 20211113
  2. REMODULIN [Suspect]
     Active Substance: TREPROSTINIL
     Dosage: 0.0121 ?G/KG, CONTINUING
     Route: 058
  3. REMODULIN [Suspect]
     Active Substance: TREPROSTINIL
     Dosage: 0.007 ?G/KG, CONTINUING (PUMP RATE 0.006ML/HR)
     Route: 058
  4. REMODULIN [Suspect]
     Active Substance: TREPROSTINIL
     Dosage: 0.008 ?G/KG, CONTINUING
     Route: 058
     Dates: end: 20220427

REACTIONS (26)
  - Pain in jaw [Recovering/Resolving]
  - Pain in extremity [Recovering/Resolving]
  - Myalgia [Unknown]
  - Swelling [Unknown]
  - Scleroderma [Unknown]
  - Pain [Unknown]
  - Anger [Unknown]
  - Depression [Unknown]
  - Fall [Recovered/Resolved with Sequelae]
  - Arthralgia [Not Recovered/Not Resolved]
  - Pyrexia [Unknown]
  - Swelling face [Unknown]
  - Ear swelling [Unknown]
  - Eye swelling [Unknown]
  - Erythema of eyelid [Unknown]
  - Episcleritis [Unknown]
  - Eye pruritus [Unknown]
  - Eye irritation [Unknown]
  - Lymphadenopathy [Unknown]
  - Abdominal distension [Unknown]
  - Oedema peripheral [Unknown]
  - Breast enlargement [Unknown]
  - Nausea [Unknown]
  - Breast pain [Unknown]
  - Cough [Unknown]
  - Headache [Unknown]

NARRATIVE: CASE EVENT DATE: 20220403
